FAERS Safety Report 12163670 (Version 1)
Quarter: 2016Q1

REPORT INFORMATION
  Report Type: Spontaneous
  Country: US (occurrence: None)
  Receive Date: 20160308
  Receipt Date: 20160308
  Transmission Date: 20160526
  Serious: Yes (Hospitalization)
  Sender: FDA-Public Use
  Company Number: None

PATIENT
  Age: 51 Year
  Sex: Female
  Weight: 62 kg

DRUGS (2)
  1. LAMOTRIGINE. [Suspect]
     Active Substance: LAMOTRIGINE
     Indication: MANIA
     Dosage: 1 TAB UD PO
     Route: 048
     Dates: start: 20151014, end: 20151110
  2. LAMOTRIGINE. [Suspect]
     Active Substance: LAMOTRIGINE
     Indication: BIPOLAR DISORDER
     Dosage: 1 TAB UD PO
     Route: 048
     Dates: start: 20151014, end: 20151110

REACTIONS (1)
  - Drug eruption [None]

NARRATIVE: CASE EVENT DATE: 20151111
